FAERS Safety Report 11395044 (Version 1)
Quarter: 2015Q3

REPORT INFORMATION
  Report Type: Spontaneous
  Country: NO (occurrence: NO)
  Receive Date: 20150819
  Receipt Date: 20150819
  Transmission Date: 20151125
  Serious: Yes (Other)
  Sender: FDA-Public Use
  Company Number: NO-JNJFOC-20150807232

PATIENT
  Age: 22 Year
  Sex: Male
  Weight: 75 kg

DRUGS (2)
  1. CONCERTA [Suspect]
     Active Substance: METHYLPHENIDATE HYDROCHLORIDE
     Indication: ATTENTION DEFICIT/HYPERACTIVITY DISORDER
     Route: 048
  2. CONCERTA [Suspect]
     Active Substance: METHYLPHENIDATE HYDROCHLORIDE
     Indication: ATTENTION DEFICIT/HYPERACTIVITY DISORDER
     Route: 048
     Dates: start: 20040301, end: 20110501

REACTIONS (13)
  - Somnambulism [Recovered/Resolved]
  - Insomnia [Recovered/Resolved]
  - Aggression [Recovered/Resolved]
  - Decreased appetite [Recovered/Resolved]
  - Sleep terror [Recovered/Resolved]
  - Hallucination [Recovered/Resolved]
  - Hyperhidrosis [Recovered/Resolved]
  - Nausea [Recovered/Resolved]
  - Sleep sex [Recovered/Resolved]
  - Suicidal ideation [Recovered/Resolved]
  - Depression [Recovered/Resolved]
  - Skin odour abnormal [Recovered/Resolved]
  - Poor quality sleep [Recovered/Resolved]

NARRATIVE: CASE EVENT DATE: 2004
